FAERS Safety Report 5586287-0 (Version None)
Quarter: 2008Q1

REPORT INFORMATION
  Report Type: 
  Country: None (occurrence: None)
  Receive Date: 20080107
  Receipt Date: 20080107
  Transmission Date: 20080703
  Serious: Yes (Hospitalization)
  Sender: FDA-Public Use
  Company Number: None

PATIENT
  Age: 74 Year
  Sex: Male
  Weight: 90.7194 kg

DRUGS (1)
  1. NEW HEAD + SHOULDER SHAMPOO  SENSITIVE CARE -HDRAZINC   PROCTOR + GAMB [Suspect]
     Dosage: 1 SHAMPOO
     Dates: start: 20060819, end: 20060819

REACTIONS (7)
  - ARTHROPATHY [None]
  - PHARMACEUTICAL PRODUCT COMPLAINT [None]
  - PRURITUS [None]
  - RHEUMATOID ARTHRITIS [None]
  - SHOCK [None]
  - SWELLING [None]
  - URTICARIA [None]
